FAERS Safety Report 6467241-3 (Version None)
Quarter: 2009Q4

REPORT INFORMATION
  Report Type: 
  Country: None (occurrence: None)
  Receive Date: 20091202
  Receipt Date: 20091126
  Transmission Date: 20100525
  Serious: Yes (Hospitalization)
  Sender: FDA-Public Use
  Company Number: DE-SANOFI-AVENTIS-2009SA004944

PATIENT
  Age: 75 Year
  Sex: Male

DRUGS (9)
  1. OXALIPLATIN [Suspect]
     Route: 041
     Dates: start: 20090929, end: 20090929
  2. OXALIPLATIN [Suspect]
     Route: 041
     Dates: start: 20091110, end: 20091110
  3. TAXOTERE [Suspect]
     Route: 041
     Dates: start: 20090929, end: 20090929
  4. TAXOTERE [Suspect]
     Route: 041
     Dates: start: 20091110, end: 20091110
  5. FLUOROURACIL [Suspect]
     Route: 041
     Dates: start: 20090929, end: 20090929
  6. FLUOROURACIL [Suspect]
     Route: 041
     Dates: start: 20091110, end: 20091110
  7. FOLINIC ACID [Suspect]
     Route: 041
     Dates: start: 20090929, end: 20090929
  8. FOLINIC ACID [Suspect]
     Route: 041
     Dates: start: 20091110, end: 20091110
  9. BISOPROLOL [Concomitant]
     Dosage: 2.5 MG: 1-2-0
     Route: 048

REACTIONS (4)
  - APHASIA [None]
  - NAUSEA [None]
  - NEUROLOGICAL EXAMINATION ABNORMAL [None]
  - VOMITING [None]
